FAERS Safety Report 11701851 (Version 1)
Quarter: 2015Q4

REPORT INFORMATION
  Report Type: Spontaneous
  Country: US (occurrence: US)
  Receive Date: 20151105
  Receipt Date: 20151105
  Transmission Date: 20160304
  Serious: No
  Sender: FDA-Public Use
  Company Number: US-MALLINCKRODT-T201504573

PATIENT
  Age: 66 Year
  Sex: Male
  Weight: 83 kg

DRUGS (6)
  1. PREDNISONE. [Concomitant]
     Active Substance: PREDNISONE
  2. GABAPENTIN. [Concomitant]
     Active Substance: GABAPENTIN
  3. CYMBALTA [Concomitant]
     Active Substance: DULOXETINE HYDROCHLORIDE
  4. DICLOFENAC [Concomitant]
     Active Substance: DICLOFENAC
  5. HYDROCODONE [Concomitant]
     Active Substance: HYDROCODONE
  6. FENTANYL TRANSDERMAL SYSTEM [Suspect]
     Active Substance: FENTANYL
     Indication: PAIN
     Dosage: 75 MCG/HR; ONE PATCH Q72 HOURS
     Route: 062
     Dates: start: 201502

REACTIONS (6)
  - Drug ineffective [Recovered/Resolved]
  - Product distribution issue [Recovered/Resolved]
  - Insomnia [Recovered/Resolved]
  - Restlessness [Recovered/Resolved]
  - Inappropriate schedule of drug administration [Recovered/Resolved]
  - Muscle spasms [Recovered/Resolved]

NARRATIVE: CASE EVENT DATE: 201503
